FAERS Safety Report 21169421 (Version 1)
Quarter: 2022Q3

REPORT INFORMATION
  Report Type: Spontaneous
  Country: NO (occurrence: NO)
  Receive Date: 20220804
  Receipt Date: 20220804
  Transmission Date: 20221026
  Serious: Yes (Disabling)
  Sender: FDA-Public Use
  Company Number: None

PATIENT
  Age: 54 Year
  Sex: Female
  Weight: 70 kg

DRUGS (1)
  1. OLANZAPINE [Suspect]
     Active Substance: OLANZAPINE
     Indication: Schizophrenia
     Dosage: 25 MG, DURATION: 11YEARS,N05AH03, STRENGTH 20MG
     Route: 065
     Dates: start: 2008, end: 2019

REACTIONS (6)
  - Pelvic discomfort [Recovering/Resolving]
  - Electric shock sensation [Recovering/Resolving]
  - Hyperhidrosis [Recovering/Resolving]
  - Fatigue [Recovering/Resolving]
  - Headache [Recovering/Resolving]
  - Palpitations [Recovering/Resolving]
